FAERS Safety Report 6559072-0 (Version None)
Quarter: 2010Q1

REPORT INFORMATION
  Report Type: 
  Country: None (occurrence: None)
  Receive Date: 20100129
  Receipt Date: 20100119
  Transmission Date: 20100710
  Serious: Yes (Other)
  Sender: FDA-Public Use
  Company Number: US-ABBOTT-10P-163-0619489-00

PATIENT
  Sex: Female

DRUGS (1)
  1. ERYTHROMYCIN BASE [Suspect]
     Indication: SURGERY
     Dates: start: 19990101, end: 19990101

REACTIONS (3)
  - ANAPHYLACTIC SHOCK [None]
  - SWELLING [None]
  - WHEEZING [None]
